FAERS Safety Report 7771444-5 (Version None)
Quarter: 2011Q3

REPORT INFORMATION
  Report Type: 
  Country: None (occurrence: None)
  Receive Date: 20110922
  Receipt Date: 20110614
  Transmission Date: 20111222
  Serious: No
  Sender: FDA-Public Use
  Company Number: US-ASTRAZENECA-2011SE36255

PATIENT
  Age: 41 Year
  Sex: Male
  Weight: 90.7 kg

DRUGS (4)
  1. CYMBALTA [Concomitant]
     Indication: DEPRESSION
  2. CYMBALTA [Concomitant]
     Indication: ANXIETY
  3. XANAX [Concomitant]
     Indication: ANXIETY
  4. SEROQUEL XR [Suspect]
     Route: 048

REACTIONS (2)
  - INSOMNIA [None]
  - DRUG DOSE OMISSION [None]
